FAERS Safety Report 14123644 (Version 1)
Quarter: 2017Q4

REPORT INFORMATION
  Report Type: Spontaneous
  Country: US (occurrence: US)
  Receive Date: 20171025
  Receipt Date: 20171025
  Transmission Date: 20180321
  Serious: No
  Sender: FDA-Public Use
  Company Number: US-KERYX BIOPHARMACEUTICALS INC.-2017US003144

PATIENT

DRUGS (5)
  1. AURYXIA [Suspect]
     Active Substance: TETRAFERRIC TRICITRATE DECAHYDRATE
     Indication: HYPERPHOSPHATAEMIA
     Dosage: 2 G (2 TABLETS), TID
     Route: 048
     Dates: start: 20170627, end: 20170803
  2. LEVOTHYROXINE. [Concomitant]
     Active Substance: LEVOTHYROXINE
     Dosage: 50 MICRO-G, UNK
     Route: 048
  3. RENAL [Concomitant]
     Indication: DIALYSIS
     Dosage: 1 CAPSULE, UNK
     Route: 048
     Dates: start: 20161015
  4. LOSARTAN. [Concomitant]
     Active Substance: LOSARTAN
     Dosage: 50 MG, UNK
     Route: 048
     Dates: start: 20170131
  5. NOVOLOG [Concomitant]
     Active Substance: INSULIN ASPART
     Dosage: 4 UNIT, UNK
     Route: 042
     Dates: start: 20161015

REACTIONS (2)
  - Faeces discoloured [Recovered/Resolved]
  - Diarrhoea [Recovered/Resolved]

NARRATIVE: CASE EVENT DATE: 20170627
